APPROVED DRUG PRODUCT: NELARABINE
Active Ingredient: NELARABINE
Strength: 375MG/75ML (5MG/ML)
Dosage Form/Route: INJECTABLE;INTRAVENOUS
Application: A214809 | Product #002
Applicant: SHORLA PHARMA LTD
Approved: Jul 16, 2025 | RLD: No | RS: Yes | Type: RX